FAERS Safety Report 25277599 (Version 1)
Quarter: 2025Q2

REPORT INFORMATION
  Report Type: Spontaneous
  Country: US (occurrence: US)
  Receive Date: 20250507
  Receipt Date: 20250507
  Transmission Date: 20250717
  Serious: No
  Sender: HIKMA
  Company Number: HIKM2403618

PATIENT
  Age: 72 Year
  Sex: Male

DRUGS (1)
  1. AMIKACIN [Suspect]
     Active Substance: AMIKACIN
     Indication: Product used for unknown indication
     Route: 065

REACTIONS (5)
  - Condition aggravated [Unknown]
  - Cough [Unknown]
  - Sputum increased [Unknown]
  - Haemoptysis [Unknown]
  - Weight decreased [Unknown]
